FAERS Safety Report 11614863 (Version 3)
Quarter: 2021Q3

REPORT INFORMATION
  Report Type: Spontaneous
  Country: IT (occurrence: IT)
  Receive Date: 20151009
  Receipt Date: 20210811
  Transmission Date: 20211014
  Serious: Yes (Disabling)
  Sender: FDA-Public Use
  Company Number: IT-TEVA-596540ISR

PATIENT
  Sex: Female

DRUGS (4)
  1. FLUCONAZOLO [Concomitant]
     Indication: PROPHYLAXIS
  2. ATRA [Concomitant]
     Active Substance: TRETINOIN
  3. CORTISONE [Concomitant]
     Active Substance: CORTISONE
  4. TRISENOX [Suspect]
     Active Substance: ARSENIC TRIOXIDE
     Indication: ACUTE PROMYELOCYTIC LEUKAEMIA
     Route: 065

REACTIONS (4)
  - Neuropathy peripheral [Unknown]
  - Walking disability [Unknown]
  - Motor dysfunction [Unknown]
  - Quadriparesis [Unknown]
